FAERS Safety Report 21630323 (Version 1)
Quarter: 2022Q4

REPORT INFORMATION
  Report Type: Report from Study
  Country: US (occurrence: US)
  Receive Date: 20221122
  Receipt Date: 20221122
  Transmission Date: 20230112
  Serious: No
  Sender: FDA-Public Use
  Company Number: US-ABBVIE-4158424

PATIENT
  Sex: Female

DRUGS (1)
  1. HUMIRA [Suspect]
     Active Substance: ADALIMUMAB
     Indication: Hidradenitis
     Dosage: STRENGTH- 80 MG
     Route: 058
     Dates: end: 202208

REACTIONS (3)
  - Maternal exposure during pregnancy [Unknown]
  - Hormone level abnormal [Unknown]
  - Wrong technique in product usage process [Not Recovered/Not Resolved]
